FAERS Safety Report 16708054 (Version 3)
Quarter: 2019Q4

REPORT INFORMATION
  Report Type: Report from Study
  Country: US (occurrence: US)
  Receive Date: 20190815
  Receipt Date: 20191105
  Transmission Date: 20200122
  Serious: Yes (Hospitalization, Other)
  Sender: FDA-Public Use
  Company Number: US-GILEAD-2018-0355195

PATIENT
  Age: 70 Year
  Sex: Male
  Weight: 103 kg

DRUGS (49)
  1. TOCILIZUMAB. [Concomitant]
     Active Substance: TOCILIZUMAB
     Dosage: 800,MG,AS NECESSARY
     Route: 041
     Dates: start: 20180802, end: 20180803
  2. BYSTOLIC [Concomitant]
     Active Substance: NEBIVOLOL HYDROCHLORIDE
     Dosage: 5,MG,DAILY
     Route: 048
     Dates: start: 20180924
  3. EVOLOCUMAB [Concomitant]
     Active Substance: EVOLOCUMAB
     Dosage: 140,OTHER,OTHER
     Route: 058
     Dates: start: 20180124
  4. BACTRIM [Concomitant]
     Active Substance: SULFAMETHOXAZOLE\TRIMETHOPRIM
     Dosage: 80,MG,DAILY
     Route: 048
     Dates: start: 20180825
  5. CEFTAZIDIME. [Concomitant]
     Active Substance: CEFTAZIDIME
     Dosage: 2,G,THREE TIMES DAILY
     Route: 041
     Dates: start: 20180801, end: 20180810
  6. CHOLECALCIFEROL [Concomitant]
     Active Substance: CHOLECALCIFEROL
     Dosage: 2000, OTHER, DAILY
     Dates: start: 20170814
  7. LACTINEX [LACTOBACILLUS ACIDOPHILUS;LACTOBACILLUS BULGARICUS] [Concomitant]
     Dosage: 100,OTHER,TWICE DAILY
     Route: 048
     Dates: start: 20180924
  8. PLATELETS [Concomitant]
     Active Substance: HUMAN PLATELET, ALLOGENIC
     Dosage: 1,OTHER,OTHER
     Route: 041
     Dates: start: 20180806, end: 20180806
  9. PLATELETS [Concomitant]
     Active Substance: HUMAN PLATELET, ALLOGENIC
     Dosage: 1,OTHER,OTHER
     Route: 041
     Dates: start: 20180809, end: 20180809
  10. FLUDARABINE [Suspect]
     Active Substance: FLUDARABINE PHOSPHATE
     Indication: CHEMOTHERAPY
     Dosage: 30 MG/M2, QD X 3
     Route: 042
     Dates: start: 20180726, end: 20180728
  11. TOCILIZUMAB. [Concomitant]
     Active Substance: TOCILIZUMAB
     Dosage: UNK
     Dates: start: 20180802, end: 20180802
  12. PLATELETS [Concomitant]
     Active Substance: HUMAN PLATELET, ALLOGENIC
     Dosage: 1,OTHER,OTHER
     Route: 041
     Dates: start: 20180814, end: 20180814
  13. PLATELETS [Concomitant]
     Active Substance: HUMAN PLATELET, ALLOGENIC
     Dosage: 1,OTHER,OTHER
     Route: 041
     Dates: start: 20180818, end: 20180818
  14. KEPPRA [Concomitant]
     Active Substance: LEVETIRACETAM
     Dosage: 750,MG,TWICE DAILY
     Route: 048
     Dates: start: 20180730, end: 20180806
  15. FOLIC ACID. [Concomitant]
     Active Substance: FOLIC ACID
     Dosage: 1,MG,DAILY
     Route: 048
     Dates: start: 20180801, end: 20180830
  16. DIPHENHYDRAMINE. [Concomitant]
     Active Substance: DIPHENHYDRAMINE
     Dosage: 25,MG,OTHER
     Route: 041
     Dates: start: 20180731, end: 20180731
  17. DEMEROL [Concomitant]
     Active Substance: MEPERIDINE HYDROCHLORIDE
     Dosage: 12.5,OTHER,AS NECESSARY
     Route: 041
     Dates: start: 20180801, end: 20180803
  18. AXICABTAGENE CILOLEUCEL [Suspect]
     Active Substance: AXICABTAGENE CILOLEUCEL
     Indication: NON-HODGKIN^S LYMPHOMA UNSPECIFIED HISTOLOGY INDOLENT
     Dosage: 68 ML, ONCE
     Route: 042
     Dates: start: 20180731, end: 20180731
  19. CYCLOPHOSPHAMIDE. [Suspect]
     Active Substance: CYCLOPHOSPHAMIDE
     Indication: CHEMOTHERAPY
     Dosage: 500 MG/M2, QD X 3
     Route: 042
     Dates: start: 20180726, end: 20180728
  20. MESNA. [Suspect]
     Active Substance: MESNA
     Indication: PROPHYLAXIS
     Dosage: 125
     Route: 042
     Dates: start: 20180726, end: 20180728
  21. FOLIC ACID. [Concomitant]
     Active Substance: FOLIC ACID
     Dosage: 1,MG,DAILY
     Route: 048
     Dates: start: 20180823
  22. THIAMINE. [Concomitant]
     Active Substance: THIAMINE
     Dosage: 100,MG,DAILY
     Route: 041
     Dates: start: 20180808, end: 20180822
  23. DEXTROSE AND SODIUM CHLORIDE [Concomitant]
     Active Substance: DEXTROSE MONOHYDRATE\SODIUM CHLORIDE
  24. RIVAROXABAN [Concomitant]
     Active Substance: RIVAROXABAN
     Dosage: 10,MG,DAILY
     Route: 048
     Dates: start: 20170424
  25. IMODIUM [Concomitant]
     Active Substance: LOPERAMIDE HYDROCHLORIDE
     Dosage: 4,MG,AS NECESSARY
     Route: 048
     Dates: start: 20180804, end: 20180805
  26. PLATELETS [Concomitant]
     Active Substance: HUMAN PLATELET, ALLOGENIC
     Dosage: 1,OTHER,OTHER
     Route: 041
     Dates: start: 20180804, end: 20180804
  27. BACTRIM [Concomitant]
     Active Substance: SULFAMETHOXAZOLE\TRIMETHOPRIM
     Dosage: 80,MG,DAILY
     Route: 048
     Dates: start: 20180730, end: 20180807
  28. CEFTAZIDIME. [Concomitant]
     Active Substance: CEFTAZIDIME
     Dosage: 2,G,THREE TIMES DAILY
     Route: 041
     Dates: start: 20180802, end: 20180810
  29. LOVENOX [Concomitant]
     Active Substance: ENOXAPARIN SODIUM
     Dosage: 40,MG,DAILY
     Route: 058
     Dates: start: 20180731, end: 20180801
  30. FOLIC ACID. [Concomitant]
     Active Substance: FOLIC ACID
     Dosage: 1,MG,DAILY
     Route: 041
     Dates: start: 20180820, end: 20180822
  31. VITAMIN D [COLECALCIFEROL] [Concomitant]
     Active Substance: CHOLECALCIFEROL
     Dosage: 2000,OTHER,DAILY
     Route: 048
     Dates: start: 20170814
  32. LIDOCAINE-EPINEPHRINE [Concomitant]
     Active Substance: EPINEPHRINE\LIDOCAINE
     Dosage: 8,ML,AS NECESSARY
     Route: 058
     Dates: start: 20180725, end: 20180725
  33. TOCILIZUMAB. [Concomitant]
     Active Substance: TOCILIZUMAB
     Dosage: UNK
     Dates: start: 20180803, end: 20180803
  34. ACYCLOVIR [ACICLOVIR] [Concomitant]
     Active Substance: ACYCLOVIR
     Dosage: 400 MG, TID
     Dates: start: 20180824
  35. ENALAPRIL [Concomitant]
     Active Substance: ENALAPRIL
     Dosage: 2..5,MG,FOUR TIMES DAILY
     Route: 041
     Dates: start: 20180808, end: 20180824
  36. CYANOCOBALAMIN. [Concomitant]
     Active Substance: CYANOCOBALAMIN
     Dosage: 1000,OTHER,DAILY
     Route: 048
     Dates: start: 20180801, end: 20180806
  37. LISINOPRIL. [Concomitant]
     Active Substance: LISINOPRIL
     Dosage: 10,MG,DAILY
     Route: 048
     Dates: start: 20170424
  38. NEBIVOLOL. [Concomitant]
     Active Substance: NEBIVOLOL
     Dosage: 5,MG,DAILY
     Route: 048
     Dates: start: 20170608
  39. LEVAQUIN [Concomitant]
     Active Substance: LEVOFLOXACIN
     Dosage: 500,MG,DAILY
     Route: 048
     Dates: start: 20180730, end: 20180731
  40. RED BLOOD CELLS [Concomitant]
     Active Substance: HUMAN RED BLOOD CELL
     Dosage: 1,OTHER,OTHER
     Route: 041
     Dates: start: 20180810, end: 20180810
  41. RED BLOOD CELLS [Concomitant]
     Active Substance: HUMAN RED BLOOD CELL
     Dosage: 1,OTHER,OTHER
     Route: 041
     Dates: start: 20180824, end: 20180824
  42. PREDNISONE. [Concomitant]
     Active Substance: PREDNISONE
     Dosage: UNK
     Dates: start: 20190918
  43. BACTRIM [Concomitant]
     Active Substance: SULFAMETHOXAZOLE\TRIMETHOPRIM
     Dosage: 80,MG,DAILY
     Route: 041
     Dates: start: 20180808, end: 20180824
  44. VANCOMYCIN [Concomitant]
     Active Substance: VANCOMYCIN
     Dosage: 15,OTHER,TWICE DAILY
     Route: 041
     Dates: start: 20180803, end: 20180804
  45. SODIUM CHLORIDE. [Concomitant]
     Active Substance: SODIUM CHLORIDE
  46. OXYGEN. [Concomitant]
     Active Substance: OXYGEN
     Dosage: 2,OTHER,OTHER
     Route: 045
     Dates: start: 20180803, end: 20180803
  47. RED BLOOD CELLS [Concomitant]
     Active Substance: HUMAN RED BLOOD CELL
     Dosage: 1,OTHER,OTHER
     Route: 041
     Dates: start: 20180803, end: 20180803
  48. RED BLOOD CELLS [Concomitant]
     Active Substance: HUMAN RED BLOOD CELL
     Dosage: 1,OTHER,OTHER
     Route: 041
     Dates: start: 20180815, end: 20180815
  49. RED BLOOD CELLS [Concomitant]
     Active Substance: HUMAN RED BLOOD CELL
     Dosage: 1,OTHER,OTHER
     Route: 041
     Dates: start: 20180821, end: 20180821

REACTIONS (3)
  - Anaemia [Recovered/Resolved]
  - Agitation [Recovered/Resolved]
  - Somnolence [Recovered/Resolved]

NARRATIVE: CASE EVENT DATE: 20180807
